FAERS Safety Report 10479703 (Version 1)
Quarter: 2014Q3

REPORT INFORMATION
  Report Type: Spontaneous
  Country: CH (occurrence: CH)
  Receive Date: 20140927
  Receipt Date: 20140927
  Transmission Date: 20150326
  Serious: Yes (Hospitalization)
  Sender: FDA-Public Use
  Company Number: PHHY2014CH122091

PATIENT
  Age: 54 Year
  Sex: Female

DRUGS (14)
  1. ZYPREXA [Interacting]
     Active Substance: OLANZAPINE
     Dosage: 5 MG, DAILY
     Route: 048
     Dates: start: 20140207, end: 20140211
  2. ZYPREXA [Interacting]
     Active Substance: OLANZAPINE
     Dosage: 15 MG, UNK
     Route: 048
     Dates: start: 20140131, end: 20140204
  3. LEPONEX [Interacting]
     Active Substance: CLOZAPINE
     Dosage: UNK, (175 MG TO 200 MG DAILY)
     Dates: start: 20140203, end: 20140204
  4. LEPONEX [Interacting]
     Active Substance: CLOZAPINE
     Dosage: UNK, (225 MG TO 250 MG DAILY)
     Route: 048
     Dates: start: 20140205, end: 20140206
  5. LEPONEX [Interacting]
     Active Substance: CLOZAPINE
     Dosage: 300 MG, DAILY
     Route: 048
     Dates: start: 20140210
  6. ZYPREXA [Interacting]
     Active Substance: OLANZAPINE
     Dosage: 10 MG, DAILY
     Route: 048
     Dates: start: 20140205, end: 20140206
  7. LEPONEX [Interacting]
     Active Substance: CLOZAPINE
     Dosage: UKN
     Dates: start: 20140217
  8. LYRICA [Interacting]
     Active Substance: PREGABALIN
     Dosage: 200 MG, DAILY
     Route: 048
     Dates: end: 20140212
  9. ZYPREXA [Interacting]
     Active Substance: OLANZAPINE
     Indication: SCHIZOPHRENIA, PARANOID TYPE
     Dosage: 20 MG, DAILY (FOR MONTHS)
     Route: 048
     Dates: start: 20140130
  10. LEPONEX [Interacting]
     Active Substance: CLOZAPINE
     Dosage: UNK, (50 MG TO 75 MG DAILY)
     Route: 048
     Dates: start: 20140129, end: 20140130
  11. LEPONEX [Interacting]
     Active Substance: CLOZAPINE
     Dosage: 275 MG, DAILY
     Route: 048
     Dates: start: 20140207
  12. LEPONEX [Suspect]
     Active Substance: CLOZAPINE
     Indication: SCHIZOPHRENIA, PARANOID TYPE
     Dosage: UNK, (12.5 TO 25 MG DAILY)
     Route: 048
     Dates: start: 20140127, end: 20140128
  13. LEPONEX [Interacting]
     Active Substance: CLOZAPINE
     Dosage: UNK, (100 MG TO 150 MG DAILY)
     Route: 048
     Dates: start: 20140131, end: 20140202
  14. LEPONEX [Interacting]
     Active Substance: CLOZAPINE
     Dosage: 300 MG, DAILY
     Route: 048
     Dates: start: 20140208

REACTIONS (2)
  - Toxicity to various agents [Recovered/Resolved]
  - Drug interaction [Recovered/Resolved]

NARRATIVE: CASE EVENT DATE: 20140208
